FAERS Safety Report 12222329 (Version 7)
Quarter: 2016Q2

REPORT INFORMATION
  Report Type: Other
  Country: JP (occurrence: JP)
  Receive Date: 20160330
  Receipt Date: 20160622
  Transmission Date: 20160815
  Serious: Yes (Death, Hospitalization, Other)
  Sender: FDA-Public Use
  Company Number: JP-TAKEDA-2016TJP004112

PATIENT
  Age: 89 Year
  Sex: Female
  Weight: 37 kg

DRUGS (12)
  1. VASOLAN                            /00014302/ [Suspect]
     Active Substance: VERAPAMIL HYDROCHLORIDE
     Indication: ATRIAL FIBRILLATION
     Dosage: 40 MG, BID, (AFTER BREAKFAST AND DINNER)
     Route: 048
     Dates: start: 20150311, end: 20150321
  2. TAKEPRON OD TABLETS 15 [Suspect]
     Active Substance: LANSOPRAZOLE
     Indication: PROPHYLAXIS AGAINST GASTROINTESTINAL ULCER
     Dosage: 15 MG, QD, (AFTER DINNER)
     Route: 048
     Dates: start: 20150313, end: 20150321
  3. ELIQUIS [Suspect]
     Active Substance: APIXABAN
     Indication: CEREBROVASCULAR ACCIDENT PROPHYLAXIS
     Dosage: 5 MG, QD, (AFTER DINNER)
     Route: 048
     Dates: start: 20150315, end: 20150321
  4. DIGOXIN. [Suspect]
     Active Substance: DIGOXIN
     Indication: TACHYCARDIA
     Dosage: 0.062 MG, UNK
     Route: 048
     Dates: start: 20150629
  5. ISOSORBIDE DINITRATE. [Suspect]
     Active Substance: ISOSORBIDE DINITRATE
     Indication: ATRIAL FIBRILLATION
     Dosage: 40 MG, QD
     Route: 062
     Dates: start: 20150311, end: 20150322
  6. ELIQUIS [Suspect]
     Active Substance: APIXABAN
     Indication: TACHYCARDIA
  7. OMEPRAZOLE. [Concomitant]
     Active Substance: OMEPRAZOLE
     Dosage: UNK UNK, QD
     Route: 048
  8. DIGOXIN. [Suspect]
     Active Substance: DIGOXIN
     Indication: ATRIAL FIBRILLATION
     Dosage: 0.125 MG, QD
     Route: 048
     Dates: start: 20150312, end: 20150321
  9. VASOLAN                            /00014302/ [Suspect]
     Active Substance: VERAPAMIL HYDROCHLORIDE
     Indication: TACHYCARDIA
     Dosage: UNK
     Route: 048
     Dates: start: 20150413
  10. ISOSORBIDE DINITRATE. [Suspect]
     Active Substance: ISOSORBIDE DINITRATE
     Indication: TACHYCARDIA
  11. OMEPRAZOLE. [Concomitant]
     Active Substance: OMEPRAZOLE
     Dosage: 10 MG, QD
     Route: 048
     Dates: start: 20150409
  12. ELIQUIS [Suspect]
     Active Substance: APIXABAN
     Indication: ATRIAL FIBRILLATION

REACTIONS (4)
  - Tachycardia [Unknown]
  - Stevens-Johnson syndrome [Recovered/Resolved]
  - Cerebral infarction [Fatal]
  - Atrial flutter [Unknown]

NARRATIVE: CASE EVENT DATE: 20150321
